FAERS Safety Report 4709431-3 (Version None)
Quarter: 2005Q3

REPORT INFORMATION
  Report Type: 
  Country: None (occurrence: None)
  Receive Date: 20050708
  Receipt Date: 20050626
  Transmission Date: 20060218
  Serious: Yes (Hospitalization)
  Sender: FDA-Public Use
  Company Number: US-AMGEN-US140302

PATIENT
  Sex: Female

DRUGS (8)
  1. NEULASTA [Suspect]
     Indication: CHEMOTHERAPY
     Dates: start: 20050617
  2. COUMADIN [Concomitant]
     Dates: start: 19890101
  3. COUMADIN [Concomitant]
     Dates: start: 19890101
  4. ACCUPRIL [Concomitant]
     Dates: start: 20000101
  5. LEVOXYL [Concomitant]
  6. POTASSIUM CHLORIDE [Concomitant]
     Dates: start: 19850101
  7. CYTOXAN [Concomitant]
     Dates: start: 20050616
  8. ADRIAMYCIN PFS [Concomitant]
     Dates: start: 20050616

REACTIONS (4)
  - ABDOMINAL PAIN [None]
  - ABDOMINAL PAIN UPPER [None]
  - BONE PAIN [None]
  - PNEUMONIA [None]
